FAERS Safety Report 6360301-7 (Version None)
Quarter: 2009Q3

REPORT INFORMATION
  Report Type: 
  Country: None (occurrence: None)
  Receive Date: 20090917
  Receipt Date: 20090910
  Transmission Date: 20100115
  Serious: Yes (Other)
  Sender: FDA-Public Use
  Company Number: GB-TEVA-208957ISR

PATIENT
  Age: 66 Year
  Sex: Female

DRUGS (4)
  1. DOXYCYCLINE [Suspect]
     Route: 048
  2. PREDNISOLONE [Suspect]
     Indication: DERMATITIS ATOPIC
  3. CORTICOSTEROIDS [Suspect]
     Indication: DERMATITIS ATOPIC
     Route: 061
  4. SODIUM STIBOGLUCONATE [Suspect]
     Route: 042

REACTIONS (11)
  - BLOOD AMYLASE INCREASED [None]
  - CONDITION AGGRAVATED [None]
  - CUTANEOUS LEISHMANIASIS [None]
  - ECZEMA [None]
  - LIVER FUNCTION TEST ABNORMAL [None]
  - LYMPHOCYTIC INFILTRATION [None]
  - NEURODERMATITIS [None]
  - ROSACEA [None]
  - SKIN LESION [None]
  - SKIN NODULE [None]
  - TYPE 2 DIABETES MELLITUS [None]
